FAERS Safety Report 7645099-4 (Version None)
Quarter: 2011Q3

REPORT INFORMATION
  Report Type: 
  Country: None (occurrence: None)
  Receive Date: 20110729
  Receipt Date: 20110722
  Transmission Date: 20111222
  Serious: Yes (Hospitalization, Other)
  Sender: FDA-Public Use
  Company Number: PHHY2011DE49982

PATIENT
  Sex: Female
  Weight: 68 kg

DRUGS (5)
  1. PROCHLORPERAZINE [Concomitant]
  2. ZOMETA [Suspect]
     Indication: BONE DISORDER
     Dosage: 4 MG, EVERY 4 WEEKS
     Route: 042
     Dates: start: 20110106
  3. TRASTUZUMAB [Concomitant]
     Dates: start: 20080201
  4. IBUPROFEN [Concomitant]
     Dosage: UNK
     Dates: start: 20110329
  5. METAMIZOLE [Concomitant]
     Dosage: UNK
     Route: 048
     Dates: start: 20110329, end: 20110507

REACTIONS (3)
  - FALL [None]
  - FEMUR FRACTURE [None]
  - GENERAL PHYSICAL HEALTH DETERIORATION [None]
